FAERS Safety Report 9360955 (Version 1)
Quarter: 2013Q2

REPORT INFORMATION
  Report Type: Spontaneous
  Country: IT (occurrence: IT)
  Receive Date: 20130621
  Receipt Date: 20130621
  Transmission Date: 20140414
  Serious: Yes (Other)
  Sender: FDA-Public Use
  Company Number: IT-PFIZER INC-2013185596

PATIENT
  Age: 35 Year
  Sex: Female

DRUGS (1)
  1. LYRICA [Suspect]
     Indication: NEURALGIA
     Dosage: 75 MG, TOTAL
     Route: 048
     Dates: start: 20130612, end: 20130612

REACTIONS (5)
  - Mental impairment [Not Recovered/Not Resolved]
  - Tachycardia [Not Recovered/Not Resolved]
  - Dizziness [Not Recovered/Not Resolved]
  - Nausea [Not Recovered/Not Resolved]
  - Vision blurred [Not Recovered/Not Resolved]
